FAERS Safety Report 8971521 (Version 1)
Quarter: 2012Q4

REPORT INFORMATION
  Report Type: 
  Country: US (occurrence: US)
  Receive Date: 20121217
  Receipt Date: 20121217
  Transmission Date: 20130627
  Serious: Yes (Other)
  Sender: FDA-Public Use
  Company Number: US-BAYER-2012-131619

PATIENT
  Age: 37 Year
  Sex: Female

DRUGS (1)
  1. MIRENA [Suspect]
     Indication: ENDOMETRIOSIS
     Dosage: 20 mcg/24hr, CONT
     Route: 015
     Dates: start: 20080422

REACTIONS (6)
  - Vaginal haemorrhage [None]
  - Device dislocation [None]
  - Metrorrhagia [None]
  - Endometriosis [None]
  - Pelvic pain [None]
  - Off label use [None]
